FAERS Safety Report 8893420 (Version 1)
Quarter: 2012Q4

REPORT INFORMATION
  Report Type: 
  Country: FR (occurrence: FR)
  Receive Date: 20121108
  Receipt Date: 20121108
  Transmission Date: 20130627
  Serious: Yes (Disabling)
  Sender: FDA-Public Use
  Company Number: FR-JNJFOC-20120704659

PATIENT
  Sex: Male

DRUGS (9)
  1. INTELENCE [Suspect]
     Indication: PRODUCT USED FOR UNKNOWN INDICATION
     Route: 048
     Dates: start: 200811
  2. CRESTOR [Suspect]
     Indication: PRODUCT USED FOR UNKNOWN INDICATION
     Route: 048
     Dates: start: 201111
  3. NORVIR [Suspect]
     Indication: PRODUCT USED FOR UNKNOWN INDICATION
     Route: 048
     Dates: start: 1999
  4. ISENTRESS [Concomitant]
     Route: 048
  5. PREZISTA [Concomitant]
     Route: 048
     Dates: start: 200811, end: 201109
  6. CELSENTRI [Concomitant]
     Route: 048
  7. AERIUS [Concomitant]
     Route: 065
  8. BACTRIM [Concomitant]
     Route: 065
  9. CIALIS [Concomitant]
     Dosage: sometimes
     Route: 065

REACTIONS (3)
  - Blood creatine phosphokinase increased [Not Recovered/Not Resolved]
  - Neuropathy peripheral [Not Recovered/Not Resolved]
  - Drug level increased [Unknown]
